FAERS Safety Report 9984745 (Version 1)
Quarter: 2014Q1

REPORT INFORMATION
  Report Type: Spontaneous
  Country: US (occurrence: US)
  Receive Date: 20140307
  Receipt Date: 20140307
  Transmission Date: 20141002
  Serious: No
  Sender: FDA-Public Use
  Company Number: US-BAYER-2014-035326

PATIENT
  Age: 34 Year
  Sex: Female

DRUGS (2)
  1. GADAVIST [Suspect]
     Indication: NUCLEAR MAGNETIC RESONANCE IMAGING
     Dosage: 7 ML, ONCE
     Dates: start: 20140305, end: 20140305
  2. GADAVIST [Suspect]
     Indication: PELVIC NEOPLASM

REACTIONS (2)
  - Eye swelling [None]
  - Urticaria [None]
